FAERS Safety Report 6619382-5 (Version None)
Quarter: 2010Q1

REPORT INFORMATION
  Report Type: 
  Country: None (occurrence: None)
  Receive Date: 20100309
  Receipt Date: 20100223
  Transmission Date: 20100710
  Serious: Yes (Other)
  Sender: FDA-Public Use
  Company Number: US-RANBAXY-2010US-31424

PATIENT

DRUGS (3)
  1. ISOTRETINOIN [Suspect]
     Indication: DRUG USE FOR UNKNOWN INDICATION
     Dosage: 20 MG, 2 CAPSULES QD ALTERNATING 3 CAPSULES QD
     Route: 065
     Dates: start: 20091016, end: 20100218
  2. AMNESTEEM [Suspect]
     Indication: DRUG USE FOR UNKNOWN INDICATION
     Dosage: 20 MG, UNK
     Route: 065
  3. AMNESTEEM [Suspect]
     Dosage: 40 MG, UNK
     Route: 065

REACTIONS (1)
  - PREGNANCY [None]
